FAERS Safety Report 7177459-2 (Version None)
Quarter: 2010Q4

REPORT INFORMATION
  Report Type: 
  Country: None (occurrence: None)
  Receive Date: 20101220
  Receipt Date: 20101214
  Transmission Date: 20110411
  Serious: No
  Sender: FDA-Public Use
  Company Number: US-JNJFOC-20101205336

PATIENT
  Sex: Female
  Weight: 68.04 kg

DRUGS (4)
  1. DURAGESIC-50 [Suspect]
     Indication: SCIATICA
     Route: 062
  2. DURAGESIC-50 [Suspect]
     Indication: ARTHRITIS
     Route: 062
  3. DURAGESIC-50 [Suspect]
     Route: 062
  4. DURAGESIC-50 [Suspect]
     Route: 062

REACTIONS (2)
  - DRUG ADMINISTERED AT INAPPROPRIATE SITE [None]
  - PRODUCT QUALITY ISSUE [None]
